FAERS Safety Report 6990732-3 (Version None)
Quarter: 2010Q3

REPORT INFORMATION
  Report Type: 
  Country: None (occurrence: None)
  Receive Date: 20100916
  Receipt Date: 20100802
  Transmission Date: 20110219
  Serious: Yes (Disabling, Other)
  Sender: FDA-Public Use
  Company Number: DE-PFIZER INC-2010060766

PATIENT
  Sex: Female
  Weight: 72 kg

DRUGS (8)
  1. LYRICA [Suspect]
     Indication: TRIGEMINAL NEURALGIA
     Dosage: 300 MG, 2X/DAY
     Route: 048
     Dates: start: 20050101, end: 20050101
  2. LYRICA [Suspect]
     Indication: OSTEOARTHRITIS
     Dosage: 150 MG, 2X/DAY
     Route: 048
     Dates: start: 20050101
  3. LYRICA [Suspect]
     Indication: PAIN
  4. DICLOFENAC RESINATE [Concomitant]
     Dosage: 145.6 MG, AS NEEDED
  5. DOXYHEXAL [Concomitant]
     Dosage: 300 MG, 1X/DAY
     Dates: start: 20100401, end: 20100101
  6. DOXYHEXAL [Concomitant]
     Dosage: 150 MG, 1X/DAY
     Dates: start: 20100101
  7. CITALOPRAM [Concomitant]
     Dosage: 1/2 OF 40 MG, 1X/DAY
  8. VOLTAREN [Concomitant]
     Indication: PAIN
     Dosage: 75 MG, 1X/DAY

REACTIONS (5)
  - APHASIA [None]
  - DISTURBANCE IN ATTENTION [None]
  - DIZZINESS [None]
  - FATIGUE [None]
  - MACULAR DEGENERATION [None]
